FAERS Safety Report 5421169-6 (Version None)
Quarter: 2007Q3

REPORT INFORMATION
  Report Type: 
  Country: None (occurrence: None)
  Receive Date: 20070719
  Receipt Date: 20070612
  Transmission Date: 20080115
  Serious: Yes (Other)
  Sender: FDA-Public Use
  Company Number: HQWYE608914JUN07

PATIENT
  Age: 48 Year
  Sex: Male
  Weight: 99.88 kg

DRUGS (3)
  1. ADVIL PM [Suspect]
     Indication: HEADACHE
     Dosage: 3 CAPLETS ONE TIME, ORAL
     Route: 048
     Dates: start: 20070607, end: 20070607
  2. ADVIL PM [Suspect]
     Indication: INSOMNIA
     Dosage: 3 CAPLETS ONE TIME, ORAL
     Route: 048
     Dates: start: 20070607, end: 20070607
  3. ZOLOFT [Concomitant]

REACTIONS (2)
  - DEAFNESS [None]
  - OVERDOSE [None]
